FAERS Safety Report 5092523-X (Version None)
Quarter: 2006Q3

REPORT INFORMATION
  Report Type: 
  Country: None (occurrence: None)
  Receive Date: 20060828
  Receipt Date: 20060816
  Transmission Date: 20061208
  Serious: Yes (Other)
  Sender: FDA-Public Use
  Company Number: 2006100163

PATIENT
  Sex: Male

DRUGS (20)
  1. TIKOSYN [Suspect]
     Indication: ATRIAL FIBRILLATION
     Dosage: 1000 MCG (500 MCG, 2 IN 1 D)
     Dates: start: 20020515
  2. BYETTA [Suspect]
     Indication: DIABETES MELLITUS
  3. ATROVENT [Concomitant]
  4. ALDACTONE [Concomitant]
  5. MICARDIS [Concomitant]
  6. MAVIK [Concomitant]
  7. NORVASC [Concomitant]
  8. TOPROL-XL [Concomitant]
  9. LASIX [Concomitant]
  10. PROSCAR [Concomitant]
  11. ZETIA [Concomitant]
  12. LIPITOR [Concomitant]
  13. STARLIX [Concomitant]
  14. DIAMOX [Concomitant]
  15. AMBIEN [Concomitant]
  16. DESYREL [Concomitant]
  17. COUMADIN [Concomitant]
  18. KLOR-CON [Concomitant]
  19. MAGNESIUM (MAGNESIUM) [Concomitant]
  20. COENZYME Q10 [Concomitant]

REACTIONS (3)
  - DIABETES MELLITUS [None]
  - DRUG INTERACTION [None]
  - UNEVALUABLE EVENT [None]
